FAERS Safety Report 8508839-8 (Version None)
Quarter: 2012Q3

REPORT INFORMATION
  Report Type: 
  Country: None (occurrence: None)
  Receive Date: 20120703
  Receipt Date: 20120618
  Transmission Date: 20120928
  Serious: Yes (Other)
  Sender: FDA-Public Use
  Company Number: 2012P1042382

PATIENT
  Age: 35 Year
  Sex: Male
  Weight: 81.6475 kg

DRUGS (3)
  1. LAMOTRIGINE [Suspect]
     Indication: ANGER
     Dosage: 200 MG;QD;PO ; 100 MG;QD;PO ; 50 MG;QD;PO
     Route: 048
     Dates: start: 20120608, end: 20120608
  2. LAMOTRIGINE [Suspect]
     Indication: ANGER
     Dosage: 200 MG;QD;PO ; 100 MG;QD;PO ; 50 MG;QD;PO
     Route: 048
     Dates: start: 20120518, end: 20120607
  3. LAMOTRIGINE [Suspect]
     Indication: ANGER
     Dosage: 200 MG;QD;PO ; 100 MG;QD;PO ; 50 MG;QD;PO
     Route: 048
     Dates: start: 20120609, end: 20120609

REACTIONS (13)
  - COORDINATION ABNORMAL [None]
  - MUSCULOSKELETAL CHEST PAIN [None]
  - BONE PAIN [None]
  - ROAD TRAFFIC ACCIDENT [None]
  - PAIN [None]
  - MEMORY IMPAIRMENT [None]
  - CHEST PAIN [None]
  - BRADYPHRENIA [None]
  - HAEMOPTYSIS [None]
  - FEELING ABNORMAL [None]
  - ANXIETY [None]
  - SEDATION [None]
  - DYSPNOEA [None]
